FAERS Safety Report 16782010 (Version 1)
Quarter: 2019Q3

REPORT INFORMATION
  Report Type: Report from Study
  Country: US (occurrence: US)
  Receive Date: 20190906
  Receipt Date: 20190906
  Transmission Date: 20191005
  Serious: Yes (Hospitalization, Other)
  Sender: FDA-Public Use
  Company Number: US-GILEAD-2019-0426958

PATIENT
  Sex: Female

DRUGS (1)
  1. AXICABTAGENE CILOLEUCEL [Suspect]
     Active Substance: AXICABTAGENE CILOLEUCEL
     Indication: DIFFUSE LARGE B-CELL LYMPHOMA
     Dosage: UNK ^INFUSION^
     Route: 065
     Dates: start: 20190311, end: 20190311

REACTIONS (3)
  - Neurotoxicity [Unknown]
  - Coma [Unknown]
  - Seizure [Unknown]

NARRATIVE: CASE EVENT DATE: 2019
